FAERS Safety Report 10050739 (Version 4)
Quarter: 2014Q2

REPORT INFORMATION
  Report Type: Spontaneous
  Country: LY (occurrence: LY)
  Receive Date: 20140401
  Receipt Date: 20140509
  Transmission Date: 20141212
  Serious: Yes (Death, Hospitalization)
  Sender: FDA-Public Use
  Company Number: LY-ABBVIE-14P-097-1219532-00

PATIENT
  Age: 1 Day
  Sex: Female
  Weight: 1.8 kg

DRUGS (6)
  1. AMPICILLIN [Concomitant]
     Indication: INFECTION PROPHYLAXIS
     Route: 042
     Dates: start: 20140114, end: 20140118
  2. AMPICILLIN [Concomitant]
     Indication: INFECTION
  3. AMINOPHYLIN [Concomitant]
     Indication: RESPIRATORY DISORDER
     Route: 042
     Dates: start: 20140114, end: 20140118
  4. CLAFORAN [Concomitant]
     Indication: INFECTION PROPHYLAXIS
     Route: 042
     Dates: start: 20140114, end: 20140118
  5. CLAFORAN [Concomitant]
     Indication: INFECTION
  6. SURVANTA [Suspect]
     Indication: NEONATAL RESPIRATORY DISTRESS SYNDROME
     Dosage: ROUTE: ETT
     Dates: start: 20140114, end: 20140115

REACTIONS (2)
  - Pulmonary haemorrhage [Fatal]
  - Respiratory acidosis [Fatal]
